FAERS Safety Report 4780410-3 (Version None)
Quarter: 2005Q3

REPORT INFORMATION
  Report Type: 
  Country: None (occurrence: None)
  Receive Date: 20050926
  Receipt Date: 20050914
  Transmission Date: 20060218
  Serious: Yes (Death)
  Sender: FDA-Public Use
  Company Number: 2005129341

PATIENT
  Age: 25 Year

DRUGS (2)
  1. ALPRAZOLAM [Suspect]
     Indication: ILL-DEFINED DISORDER
     Dates: end: 20040101
  2. METHADONE (METHADONE) [Suspect]
     Indication: ILL-DEFINED DISORDER
     Dates: end: 20040101

REACTIONS (5)
  - CARDIAC ARREST [None]
  - COMPLETED SUICIDE [None]
  - INTENTIONAL MISUSE [None]
  - OVERDOSE [None]
  - RESPIRATORY ARREST [None]
